FAERS Safety Report 5873375-4 (Version None)
Quarter: 2008Q3

REPORT INFORMATION
  Report Type: 
  Country: None (occurrence: None)
  Receive Date: 20080903
  Receipt Date: 20080827
  Transmission Date: 20090109
  Serious: Yes (Death)
  Sender: FDA-Public Use
  Company Number: MSTR-NO-0807S-0039

PATIENT
  Age: 82 Year
  Sex: Male
  Weight: 43 kg

DRUGS (2)
  1. METASTRON [Suspect]
     Indication: METASTATIC PAIN
     Dosage: 89 MBQ
     Dates: start: 20080522, end: 20080522
  2. ZOLEDRONIC ACID [Concomitant]

REACTIONS (1)
  - PNEUMONIA [None]
